FAERS Safety Report 25585381 (Version 1)
Quarter: 2025Q3

REPORT INFORMATION
  Report Type: Spontaneous
  Country: US (occurrence: US)
  Receive Date: 20250721
  Receipt Date: 20250721
  Transmission Date: 20251021
  Serious: Yes (Hospitalization, Other)
  Sender: ALEMBIC
  Company Number: US-ALEMBIC PHARMACUETICALS LIMITED-2025SCAL000794

PATIENT

DRUGS (2)
  1. ARIPIPRAZOLE [Suspect]
     Active Substance: ARIPIPRAZOLE
     Indication: Anxiety
     Route: 065
  2. CLOMIPRAMINE [Suspect]
     Active Substance: CLOMIPRAMINE
     Indication: Anxiety
     Route: 065

REACTIONS (14)
  - Megacolon [Recovering/Resolving]
  - Intestinal ulcer [Unknown]
  - Acute abdomen [Unknown]
  - Intestinal ischaemia [Unknown]
  - Abdominal pain [Unknown]
  - Constipation [Unknown]
  - Nausea [Unknown]
  - Chills [Unknown]
  - Tachycardia [Unknown]
  - Hypotension [Recovering/Resolving]
  - Abdominal distension [Unknown]
  - Abdominal tenderness [Unknown]
  - Haemodynamic instability [Recovering/Resolving]
  - Peritoneal disorder [Unknown]
